FAERS Safety Report 9246035 (Version 3)
Quarter: 2013Q2

REPORT INFORMATION
  Report Type: Spontaneous
  Country: JP (occurrence: JP)
  Receive Date: 20130422
  Receipt Date: 20130524
  Transmission Date: 20140414
  Serious: Yes (Hospitalization)
  Sender: FDA-Public Use
  Company Number: PHHY2013JP038007

PATIENT
  Age: 92 Year
  Sex: Female

DRUGS (8)
  1. FAMVIR [Suspect]
     Indication: HERPES ZOSTER
     Dosage: 250 MG, BID
     Route: 048
     Dates: start: 20130410, end: 20130415
  2. LANSOPRAZOLE [Concomitant]
     Dosage: 15 MG
     Route: 048
  3. MAGMITT [Concomitant]
     Dosage: 500 MG
     Route: 048
  4. DONEPEZIL HYDROCHLORIDE [Concomitant]
     Dosage: 10 MG
     Route: 048
  5. BROTIZOLAM [Concomitant]
     Dosage: 0.25 MG
     Route: 048
  6. WARFARIN [Concomitant]
     Dosage: 2.5 MG
     Route: 048
  7. MEMARY [Concomitant]
     Dosage: 20 MG
     Route: 048
  8. BROTIZOLAM [Concomitant]
     Dosage: 0.25 MG, UNK
     Route: 048

REACTIONS (3)
  - Convulsion [Recovered/Resolved]
  - Eye movement disorder [Recovered/Resolved]
  - Altered state of consciousness [Recovered/Resolved]
